FAERS Safety Report 5448996-3 (Version None)
Quarter: 2007Q3

REPORT INFORMATION
  Report Type: 
  Country: None (occurrence: None)
  Receive Date: 20070911
  Receipt Date: 20070905
  Transmission Date: 20080115
  Serious: Yes (Hospitalization)
  Sender: FDA-Public Use
  Company Number: BE-ASTRAZENECA-2007AC01578

PATIENT
  Age: 63 Year
  Sex: Female
  Weight: 66.5 kg

DRUGS (8)
  1. SEROQUEL [Suspect]
     Indication: BIPOLAR DISORDER
     Route: 048
     Dates: start: 20070425, end: 20070425
  2. CYMBALTA [Concomitant]
     Indication: DEPRESSION
     Dosage: 1 DOSE DAILY
     Route: 048
     Dates: start: 20070101
  3. ZANTAC 150 [Concomitant]
     Indication: OESOPHAGITIS
     Route: 048
     Dates: start: 20051101
  4. ESTROGEL [Concomitant]
     Indication: MENOPAUSE
     Route: 003
  5. ZOLPIDEM TARTRATE [Concomitant]
     Dosage: 0.5 DOSE DAILY
  6. RANITIDINE [Concomitant]
     Dosage: REPORTED AS RANITIDINE 300. ONE DAILY DOSE.
  7. EMCONCOR [Concomitant]
     Dosage: REPORTED AS EMCONCOR 10. ONE DAILY DOSE.
  8. DAFLON [Concomitant]

REACTIONS (4)
  - DEHYDRATION [None]
  - DRUG INTOLERANCE [None]
  - NAUSEA [None]
  - SOMNOLENCE [None]
